FAERS Safety Report 14598276 (Version 5)
Quarter: 2018Q2

REPORT INFORMATION
  Report Type: Spontaneous
  Country: US (occurrence: US)
  Receive Date: 20180305
  Receipt Date: 20180629
  Transmission Date: 20180711
  Serious: Yes (Hospitalization)
  Sender: FDA-Public Use
  Company Number: US-JNJFOC-20180133000

PATIENT
  Sex: Male
  Weight: 48.99 kg

DRUGS (4)
  1. FENTANYL. [Suspect]
     Active Substance: FENTANYL
     Indication: PAIN
     Route: 062
     Dates: start: 2016
  2. DURAGESIC [Suspect]
     Active Substance: FENTANYL
     Indication: PRODUCT USED FOR UNKNOWN INDICATION
     Route: 065
     Dates: start: 2015
  3. FENTANYL. [Suspect]
     Active Substance: FENTANYL
     Indication: PAIN
     Route: 062
  4. FENTANYL. [Suspect]
     Active Substance: FENTANYL
     Indication: PAIN
     Route: 062
     Dates: start: 2016

REACTIONS (7)
  - Inappropriate schedule of drug administration [Unknown]
  - Weight decreased [Unknown]
  - Hospitalisation [Unknown]
  - Withdrawal syndrome [Unknown]
  - Product quality issue [Unknown]
  - Neoplasm progression [Unknown]
  - Adverse event [Unknown]

NARRATIVE: CASE EVENT DATE: 2015
